FAERS Safety Report 6369699-7 (Version None)
Quarter: 2009Q3

REPORT INFORMATION
  Report Type: 
  Country: None (occurrence: None)
  Receive Date: 20090923
  Receipt Date: 20090911
  Transmission Date: 20100115
  Serious: Yes (Other)
  Sender: FDA-Public Use
  Company Number: US-PFIZER INC-2009269161

PATIENT
  Sex: Female
  Weight: 100 kg

DRUGS (7)
  1. PROVERA [Suspect]
     Indication: HORMONE REPLACEMENT THERAPY
     Dosage: UNK
     Route: 048
     Dates: start: 19940501, end: 20021101
  2. MEDROXYPROGESTERONE AND MEDROXYPROGESTERONE ACETATE [Suspect]
     Indication: HORMONE REPLACEMENT THERAPY
     Dosage: UNK
     Route: 048
     Dates: start: 19940101, end: 20020101
  3. CYCRIN [Suspect]
     Indication: HORMONE REPLACEMENT THERAPY
     Dosage: UNK
     Route: 048
     Dates: start: 19940101, end: 20020101
  4. PREMARIN [Suspect]
     Indication: HORMONE REPLACEMENT THERAPY
     Dosage: UNK
     Dates: start: 19940101, end: 20020101
  5. VENTOLIN [Concomitant]
     Indication: ASTHMA
     Dosage: UNK
     Dates: start: 19590301
  6. MOTRIN [Concomitant]
     Indication: ARTHRITIS
     Dosage: UNK
     Dates: start: 19950101
  7. MEDIHALER-ISO [Concomitant]
     Indication: ASTHMA
     Dosage: UNK
     Dates: start: 19980101

REACTIONS (1)
  - BREAST CANCER [None]
